FAERS Safety Report 14204865 (Version 1)
Quarter: 2017Q4

REPORT INFORMATION
  Report Type: Spontaneous
  Country: US (occurrence: US)
  Receive Date: 20171118
  Receipt Date: 20171118
  Transmission Date: 20180321
  Serious: Yes (Other)
  Sender: FDA-Public Use
  Company Number: None

PATIENT
  Sex: Female
  Weight: 82.8 kg

DRUGS (14)
  1. GEMZAR [Concomitant]
     Active Substance: GEMCITABINE HYDROCHLORIDE
  2. DECADRON [Concomitant]
     Active Substance: DEXAMETHASONE
  3. SINGULAIR [Concomitant]
     Active Substance: MONTELUKAST SODIUM
  4. ZOFRAN [Concomitant]
     Active Substance: ONDANSETRON HYDROCHLORIDE
  5. ZEGERID [Concomitant]
     Active Substance: OMEPRAZOLE\SODIUM BICARBONATE
  6. PHYTOESTROGEN [Concomitant]
  7. AZELASTINE HCL NASAL [Suspect]
     Active Substance: AZELASTINE HYDROCHLORIDE
     Indication: PRODUCT USED FOR UNKNOWN INDICATION
     Dosage: QUANTITY:200 SPRAY(S);?
     Route: 055
  8. CREON [Concomitant]
     Active Substance: PANCRELIPASE AMYLASE\PANCRELIPASE LIPASE\PANCRELIPASE PROTEASE
  9. LOMOTAL [Concomitant]
  10. MYRBETRIQ [Concomitant]
     Active Substance: MIRABEGRON
  11. TESALON [Concomitant]
     Active Substance: BENZONATATE
  12. FROVA [Concomitant]
     Active Substance: FROVATRIPTAN SUCCINATE
  13. NORCO [Concomitant]
     Active Substance: ACETAMINOPHEN\HYDROCODONE BITARTRATE
  14. ATIVAN [Concomitant]
     Active Substance: LORAZEPAM

REACTIONS (7)
  - Pain [None]
  - Dizziness [None]
  - Mental impairment [None]
  - Somnolence [None]
  - Dysarthria [None]
  - Loss of personal independence in daily activities [None]
  - Dyspnoea [None]

NARRATIVE: CASE EVENT DATE: 20171118
